FAERS Safety Report 5658206-X (Version None)
Quarter: 2008Q1

REPORT INFORMATION
  Report Type: 
  Country: None (occurrence: None)
  Receive Date: 20080310
  Receipt Date: 20070228
  Transmission Date: 20080703
  Serious: No
  Sender: FDA-Public Use
  Company Number: US-BAYER-200710115BCC

PATIENT
  Sex: Female
  Weight: 100 kg

DRUGS (4)
  1. ALEVE [Suspect]
     Indication: ARTHRITIS
     Dosage: TOTAL DAILY DOSE: 220 MG  UNIT DOSE: 220 MG
     Route: 048
  2. TYLENOL (CAPLET) [Concomitant]
     Route: 048
  3. ZESTRIL [Concomitant]
  4. ZESTORETIC [Concomitant]
     Indication: HYPERTENSION

REACTIONS (3)
  - BLOOD PRESSURE FLUCTUATION [None]
  - JOINT SWELLING [None]
  - OEDEMA PERIPHERAL [None]
